FAERS Safety Report 11814647 (Version 1)
Quarter: 2015Q4

REPORT INFORMATION
  Report Type: Spontaneous
  Country: CA (occurrence: None)
  Receive Date: 20151208
  Receipt Date: 20151208
  Transmission Date: 20160305
  Serious: Yes (Disabling)
  Sender: FDA-Public Use
  Company Number: None

PATIENT
  Age: 20 Year
  Sex: Male
  Weight: 83.92 kg

DRUGS (4)
  1. PERPHENAZINE. [Suspect]
     Active Substance: PERPHENAZINE
     Indication: ABNORMAL BEHAVIOUR
     Dosage: 3 PILLS AT SUPPERTIME ORALLY
     Route: 048
     Dates: start: 201101
  2. PROZAC ( FLUOXETINE ) [Concomitant]
  3. PERPHENAZINE. [Suspect]
     Active Substance: PERPHENAZINE
     Indication: MAJOR DEPRESSION
     Dosage: 3 PILLS AT SUPPERTIME ORALLY
     Route: 048
     Dates: start: 201101
  4. VITAMIN D [Concomitant]
     Active Substance: CHOLECALCIFEROL

REACTIONS (9)
  - Suicidal ideation [None]
  - Eye pain [None]
  - Pruritus [None]
  - Pain in extremity [None]
  - Constipation [None]
  - Arthralgia [None]
  - Salivary hypersecretion [None]
  - Paraesthesia [None]
  - Ear pain [None]

NARRATIVE: CASE EVENT DATE: 20150920
